FAERS Safety Report 5337287-7 (Version None)
Quarter: 2007Q2

REPORT INFORMATION
  Report Type: 
  Country: None (occurrence: None)
  Receive Date: 20070529
  Receipt Date: 20070518
  Transmission Date: 20071010
  Serious: Yes (Disabling, Other)
  Sender: FDA-Public Use
  Company Number: B0472592A

PATIENT
  Age: 69 Year
  Sex: Male

DRUGS (10)
  1. REQUIP [Suspect]
     Indication: DRUG USE FOR UNKNOWN INDICATION
     Route: 048
     Dates: start: 20060925
  2. ASPIRIN [Concomitant]
     Route: 048
     Dates: start: 20060905
  3. BECONASE [Concomitant]
     Route: 011
     Dates: start: 20051003
  4. CETIRIZINE HCL [Concomitant]
     Route: 048
     Dates: start: 20040303
  5. FERROUS SULFATE TAB [Concomitant]
     Route: 048
     Dates: start: 20070220
  6. FUROSEMIDE [Concomitant]
     Route: 048
     Dates: start: 20030326
  7. LISINOPRIL [Concomitant]
     Route: 048
     Dates: start: 20050509
  8. PARACETAMOL [Concomitant]
     Route: 048
     Dates: start: 20060905
  9. SPIRIVA [Concomitant]
     Route: 055
     Dates: start: 20060926
  10. SYMBICORT [Concomitant]
     Route: 055
     Dates: start: 20060912

REACTIONS (1)
  - HYPOTENSION [None]
